FAERS Safety Report 12828783 (Version 1)
Quarter: 2016Q4

REPORT INFORMATION
  Report Type: Spontaneous
  Country: US (occurrence: US)
  Receive Date: 20161007
  Receipt Date: 20161007
  Transmission Date: 20170207
  Serious: No
  Sender: FDA-Public Use
  Company Number: US-SA-2015SA190965

PATIENT
  Age: 58 Year
  Sex: Female

DRUGS (18)
  1. FIBER [Concomitant]
     Active Substance: PSYLLIUM HUSK
  2. VITAMIN C [Concomitant]
     Active Substance: ASCORBIC ACID
  3. TOPAMAX [Concomitant]
     Active Substance: TOPIRAMATE
  4. SYNTHROID [Concomitant]
     Active Substance: LEVOTHYROXINE SODIUM
  5. AUBAGIO [Suspect]
     Active Substance: TERIFLUNOMIDE
     Indication: MULTIPLE SCLEROSIS
     Route: 048
     Dates: start: 20151016
  6. MAGNESIUM [Concomitant]
     Active Substance: MAGNESIUM
  7. GINKGO BILOBA [Concomitant]
     Active Substance: GINKGO
  8. FISH OIL [Concomitant]
     Active Substance: FISH OIL
  9. HYDROCHLOROTHIAZIDE. [Concomitant]
     Active Substance: HYDROCHLOROTHIAZIDE
  10. PRILOSEC [Concomitant]
     Active Substance: OMEPRAZOLE MAGNESIUM
  11. CALCIUM [Concomitant]
     Active Substance: CALCIUM
  12. COQ [Concomitant]
  13. FINASTERIDE. [Concomitant]
     Active Substance: FINASTERIDE
  14. BACLOFEN. [Concomitant]
     Active Substance: BACLOFEN
  15. VITAMIN D3 [Concomitant]
     Active Substance: CHOLECALCIFEROL
  16. METOPROLOL SUCCINATE. [Concomitant]
     Active Substance: METOPROLOL SUCCINATE
  17. DICLOFENAC [Concomitant]
     Active Substance: DICLOFENAC
  18. FENOFIBRATE. [Concomitant]
     Active Substance: FENOFIBRATE

REACTIONS (3)
  - Dysgeusia [Unknown]
  - Hypoaesthesia [Unknown]
  - Paraesthesia [Unknown]

NARRATIVE: CASE EVENT DATE: 201603
